FAERS Safety Report 4358026-2 (Version None)
Quarter: 2004Q2

REPORT INFORMATION
  Report Type: 
  Country: None (occurrence: None)
  Receive Date: 20040510
  Receipt Date: 20040428
  Transmission Date: 20050107
  Serious: Yes (Hospitalization)
  Sender: FDA-Public Use
  Company Number: 2004UW08748

PATIENT
  Age: 67 Year
  Sex: Female

DRUGS (10)
  1. CRESTOR [Suspect]
     Indication: HYPERLIPIDAEMIA
     Dosage: 20 MG DAILY PO
     Route: 048
     Dates: start: 20031215, end: 20040426
  2. TRICOR [Concomitant]
  3. SYNTHROID [Concomitant]
  4. PRILOSEC [Concomitant]
  5. PRINIVIL [Concomitant]
  6. ASPIRIN [Concomitant]
  7. EVISTA [Concomitant]
  8. MICROSIDE [Concomitant]
  9. MOBIC [Concomitant]
  10. MULTI-VITAMINS [Concomitant]

REACTIONS (7)
  - ASPARTATE AMINOTRANSFERASE INCREASED [None]
  - ASTHENIA [None]
  - CONDITION AGGRAVATED [None]
  - GENERALISED OEDEMA [None]
  - HYPOTHYROIDISM [None]
  - MYOSITIS [None]
  - RENAL FAILURE ACUTE [None]
